FAERS Safety Report 20625442 (Version 1)
Quarter: 2022Q1

REPORT INFORMATION
  Report Type: Report from Study
  Country: RO (occurrence: RO)
  Receive Date: 20220323
  Receipt Date: 20220323
  Transmission Date: 20220423
  Serious: Yes (Hospitalization, Other)
  Sender: FDA-Public Use
  Company Number: RO-ABBVIE-22K-135-4326201-00

PATIENT
  Age: 58 Year
  Sex: Male

DRUGS (2)
  1. SKYRIZI [Suspect]
     Active Substance: RISANKIZUMAB-RZAA
     Indication: Psoriasis
     Route: 058
     Dates: start: 20210915, end: 202201
  2. SKYRIZI [Suspect]
     Active Substance: RISANKIZUMAB-RZAA
     Route: 058
     Dates: start: 20220309

REACTIONS (2)
  - Arthritis infective [Recovered/Resolved]
  - Staphylococcal infection [Recovered/Resolved]

NARRATIVE: CASE EVENT DATE: 20211101
